FAERS Safety Report 6150390-7 (Version None)
Quarter: 2009Q2

REPORT INFORMATION
  Report Type: 
  Country: None (occurrence: None)
  Receive Date: 20090408
  Receipt Date: 20090408
  Transmission Date: 20091009
  Serious: No
  Sender: FDA-Public Use
  Company Number: None

PATIENT
  Age: 61 Year
  Sex: Male
  Weight: 97.7 kg

DRUGS (2)
  1. ACTIVASE [Suspect]
     Indication: PULMONARY EMBOLISM
     Dosage: 100 MG ONCE IV
     Route: 042
     Dates: start: 20081209, end: 20081209
  2. ENOXAPARIN SODIUM [Suspect]
     Indication: DEEP VEIN THROMBOSIS
     Dosage: 100 MG BID SQ
     Route: 058
     Dates: start: 20071207, end: 20081210

REACTIONS (12)
  - BRAIN DEATH [None]
  - CARDIAC ARREST [None]
  - DEEP VEIN THROMBOSIS [None]
  - ELECTROLYTE IMBALANCE [None]
  - HAEMORRHAGE INTRACRANIAL [None]
  - INFUSION SITE PAIN [None]
  - INFUSION SITE SWELLING [None]
  - INFUSION SITE WARMTH [None]
  - OEDEMA PERIPHERAL [None]
  - PAIN IN EXTREMITY [None]
  - PULMONARY EMBOLISM [None]
  - SHOCK [None]
